FAERS Safety Report 6027164-0 (Version None)
Quarter: 2008Q4

REPORT INFORMATION
  Report Type: 
  Country: None (occurrence: None)
  Receive Date: 20081222
  Receipt Date: 20081125
  Transmission Date: 20090506
  Serious: No
  Sender: FDA-Public Use
  Company Number: US-WYE-H06969408

PATIENT
  Age: 68 Year
  Sex: Female

DRUGS (2)
  1. PRISTIQ [Suspect]
     Indication: PAIN
     Dosage: 50 MG EVER TWO TO THREE DAYS, UNKNOWN
     Dates: start: 20081124
  2. NEURONTIN [Concomitant]

REACTIONS (1)
  - BURNING SENSATION [None]
